FAERS Safety Report 6367950-0 (Version None)
Quarter: 2009Q3

REPORT INFORMATION
  Report Type: 
  Country: None (occurrence: None)
  Receive Date: 20090922
  Receipt Date: 20090505
  Transmission Date: 20100115
  Serious: No
  Sender: FDA-Public Use
  Company Number: A0782575A

PATIENT
  Age: 53 Year
  Sex: Male

DRUGS (6)
  1. SEREVENT [Suspect]
     Indication: EMPHYSEMA
     Dosage: 1PUFF TWICE PER DAY
     Route: 055
  2. DEPAKOTE [Concomitant]
  3. RISPERDAL [Concomitant]
  4. ATENOLOL [Concomitant]
  5. VESICARE [Concomitant]
  6. COMBIVENT [Concomitant]
     Route: 055

REACTIONS (4)
  - ABNORMAL BEHAVIOUR [None]
  - ANXIETY [None]
  - NERVOUSNESS [None]
  - TREMOR [None]
